FAERS Safety Report 7445966-0 (Version None)
Quarter: 2011Q2

REPORT INFORMATION
  Report Type: 
  Country: None (occurrence: None)
  Receive Date: 20110429
  Receipt Date: 20100920
  Transmission Date: 20111010
  Serious: No
  Sender: FDA-Public Use
  Company Number: US-ASTRAZENECA-2010SE31351

PATIENT
  Age: 68 Year
  Sex: Female
  Weight: 70.3 kg

DRUGS (11)
  1. KAPIDEX [Concomitant]
  2. IBANDRNIC ACID [Concomitant]
  3. NEXIUM [Suspect]
     Indication: GASTROOESOPHAGEAL REFLUX DISEASE
     Route: 048
     Dates: start: 20100101, end: 20100101
  4. PRILOSEC [Interacting]
     Route: 048
     Dates: start: 20100501
  5. PLAVIX [Interacting]
     Indication: STENT PLACEMENT
     Route: 048
     Dates: start: 20100101
  6. ATENOLOL [Concomitant]
  7. ALL OTHER THERAPEUTIC PRODUCTS [Concomitant]
  8. EVOXAC [Concomitant]
  9. PANTOPRAZOLE [Concomitant]
  10. ASPIRIN [Concomitant]
  11. ZOLPIDEM [Concomitant]

REACTIONS (2)
  - DRUG INTERACTION [None]
  - CHEST PAIN [None]
